FAERS Safety Report 8620291-0 (Version None)
Quarter: 2012Q3

REPORT INFORMATION
  Report Type: 
  Country: None (occurrence: None)
  Receive Date: 20120824
  Receipt Date: 20120814
  Transmission Date: 20120928
  Serious: Yes (Other)
  Sender: FDA-Public Use
  Company Number: JP-VALEANT-2012VX001586

PATIENT
  Age: 72 Year
  Sex: Male

DRUGS (5)
  1. OXALIPLATIN [Suspect]
     Route: 041
  2. LEUCOVORIN CALCIUM [Suspect]
     Route: 065
  3. FLUOROURACIL [Suspect]
     Route: 041
  4. AVASTIN [Suspect]
     Route: 041
  5. FLUOROURACIL [Suspect]
     Route: 040

REACTIONS (1)
  - LEUKOENCEPHALOPATHY [None]
